FAERS Safety Report 17978138 (Version 1)
Quarter: 2020Q3

REPORT INFORMATION
  Report Type: Spontaneous
  Country: CN (occurrence: CN)
  Receive Date: 20200703
  Receipt Date: 20200703
  Transmission Date: 20201103
  Serious: Yes (Hospitalization)
  Sender: FDA-Public Use
  Company Number: CN-BAXTER-2020BAX013525

PATIENT
  Age: 8 Year
  Sex: Male
  Weight: 24 kg

DRUGS (4)
  1. 0.9% SODIUM CHLORIDE INJECTION [Suspect]
     Active Substance: SODIUM CHLORIDE
     Dosage: DAY 1?4 OF CHEMOTHERAPY, ETOPOSIDE 75 MG + NS 500ML
     Route: 041
     Dates: start: 20200602, end: 20200605
  2. HOLOXAN [Suspect]
     Active Substance: IFOSFAMIDE
     Indication: NEOPLASM MALIGNANT
     Dosage: DAY 1?4 OF CHEMOTHERAPY, HOLOXAN 3 G + NS 500ML
     Route: 041
     Dates: start: 20200602, end: 20200605
  3. ETOPOSIDE. [Suspect]
     Active Substance: ETOPOSIDE
     Indication: NEOPLASM MALIGNANT
     Dosage: DAY 1?4 OF CHEMOTHERAPY, ETOPOSIDE (VP?16) 75 MG + NS 500ML
     Route: 041
     Dates: start: 20200602, end: 20200605
  4. 0.9% SODIUM CHLORIDE INJECTION [Suspect]
     Active Substance: SODIUM CHLORIDE
     Indication: MEDICATION DILUTION
     Dosage: DAY 1?4 OF CHEMOTHERAPY, HOLOXAN 3 G + NS 500ML
     Route: 041
     Dates: start: 20200602, end: 20200605

REACTIONS (1)
  - Myelosuppression [Recovering/Resolving]

NARRATIVE: CASE EVENT DATE: 20200610
